FAERS Safety Report 22227294 (Version 1)
Quarter: 2023Q2

REPORT INFORMATION
  Report Type: Spontaneous
  Country: US (occurrence: US)
  Receive Date: 20230419
  Receipt Date: 20230419
  Transmission Date: 20230722
  Serious: No
  Sender: FDA-Public Use
  Company Number: US-ELI_LILLY_AND_COMPANY-US202304008243

PATIENT
  Sex: Female

DRUGS (2)
  1. VERZENIO [Suspect]
     Active Substance: ABEMACICLIB
     Indication: Product used for unknown indication
     Dosage: 100 MG, UNKNOWN
     Route: 065
  2. VERZENIO [Suspect]
     Active Substance: ABEMACICLIB
     Dosage: 50 MG, UNKNOWN
     Route: 065

REACTIONS (10)
  - Drug intolerance [Unknown]
  - Quality of life decreased [Unknown]
  - Dysphagia [Recovering/Resolving]
  - Dyspepsia [Recovering/Resolving]
  - Headache [Unknown]
  - Red blood cell count decreased [Not Recovered/Not Resolved]
  - Nausea [Recovered/Resolved]
  - Alopecia [Recovering/Resolving]
  - Vomiting [Unknown]
  - Diarrhoea [Recovering/Resolving]
